FAERS Safety Report 7357737-4 (Version None)
Quarter: 2011Q1

REPORT INFORMATION
  Report Type: 
  Country: None (occurrence: None)
  Receive Date: 20110317
  Receipt Date: 20110308
  Transmission Date: 20110831
  Serious: Yes (Other)
  Sender: FDA-Public Use
  Company Number: US-JNJFOC-20110304490

PATIENT
  Sex: Female
  Weight: 51.71 kg

DRUGS (4)
  1. DURAGESIC-50 [Suspect]
     Route: 062
  2. UNKNOWN MEDICATION [Concomitant]
     Indication: CARDIAC DISORDER
     Route: 048
  3. DURAGESIC-50 [Suspect]
     Indication: PAIN
     Route: 062
  4. UNSPECIFIED FENTANYL PATCH TRANSDERMAL PATCH [Suspect]
     Indication: PAIN
     Route: 062

REACTIONS (2)
  - DRUG INEFFECTIVE [None]
  - BODY HEIGHT DECREASED [None]
